FAERS Safety Report 9244620 (Version 2)
Quarter: 2013Q2

REPORT INFORMATION
  Report Type: Spontaneous
  Country: JP (occurrence: JP)
  Receive Date: 20130422
  Receipt Date: 20130425
  Transmission Date: 20140414
  Serious: Yes (Other)
  Sender: FDA-Public Use
  Company Number: JP-PFIZER INC-2013123988

PATIENT
  Age: 40 Year
  Sex: Male

DRUGS (3)
  1. CHAMPIX [Suspect]
     Indication: SMOKING CESSATION THERAPY
     Dosage: 1 MG, 2X/DAY
     Route: 048
     Dates: start: 20130404
  2. DOGMATYL [Concomitant]
     Dosage: UNK
  3. SOLANAX [Concomitant]
     Dosage: UNK

REACTIONS (8)
  - Depression [Unknown]
  - Visual impairment [Unknown]
  - Disturbance in attention [Unknown]
  - Eye pain [Unknown]
  - Hypoaesthesia [Unknown]
  - Hypoaesthesia oral [Unknown]
  - Headache [Unknown]
  - Poor quality sleep [Unknown]
